FAERS Safety Report 9535031 (Version 1)
Quarter: 2013Q3

REPORT INFORMATION
  Report Type: Spontaneous
  Country: CA (occurrence: CA)
  Receive Date: 20130918
  Receipt Date: 20130918
  Transmission Date: 20140515
  Serious: Yes (Other)
  Sender: FDA-Public Use
  Company Number: CA-PFIZER INC-2013266625

PATIENT
  Sex: Female

DRUGS (1)
  1. ADVIL NIGHTTIME [Suspect]
     Dosage: UNK

REACTIONS (2)
  - Choking [Unknown]
  - Vomiting [Unknown]
